FAERS Safety Report 7480549-8 (Version None)
Quarter: 2011Q2

REPORT INFORMATION
  Report Type: 
  Country: None (occurrence: None)
  Receive Date: 20110516
  Receipt Date: 20110505
  Transmission Date: 20111010
  Serious: No
  Sender: FDA-Public Use
  Company Number: US-BIOGENIDEC-2011BI017178

PATIENT
  Age: 41 Year
  Sex: Male

DRUGS (4)
  1. AVONEX [Suspect]
     Route: 030
     Dates: start: 20070614, end: 20081112
  2. AVONEX [Suspect]
     Route: 030
     Dates: start: 20030604, end: 20060814
  3. AVONEX [Suspect]
     Indication: MULTIPLE SCLEROSIS
     Route: 030
     Dates: start: 20090305
  4. AVONEX [Suspect]
     Route: 030
     Dates: start: 20010301

REACTIONS (1)
  - BALANCE DISORDER [None]
